FAERS Safety Report 8986017 (Version 1)
Quarter: 2012Q4

REPORT INFORMATION
  Report Type: 
  Country: BR (occurrence: BR)
  Receive Date: 20121226
  Receipt Date: 20121226
  Transmission Date: 20130627
  Serious: Yes (Other)
  Sender: FDA-Public Use
  Company Number: BR-ASTELLAS-2012US012480

PATIENT
  Age: 38 Year
  Sex: Female
  Weight: 52 kg

DRUGS (1)
  1. PROTOPIC [Suspect]
     Indication: PIGMENTATION DISORDER
     Dosage: 0.1 %, Unknown/D
     Route: 065
     Dates: start: 20121212, end: 20121212

REACTIONS (4)
  - Off label use [Unknown]
  - Throat tightness [Recovered/Resolved]
  - Dyspnoea [Recovered/Resolved]
  - Rhinitis [Recovered/Resolved]
